FAERS Safety Report 4808995-9 (Version None)
Quarter: 2005Q4

REPORT INFORMATION
  Report Type: 
  Country: None (occurrence: None)
  Receive Date: 20051021
  Receipt Date: 20020214
  Transmission Date: 20060501
  Serious: No
  Sender: FDA-Public Use
  Company Number: US_011279267

PATIENT
  Age: 57 Year
  Sex: Female
  Weight: 63 kg

DRUGS (9)
  1. ZYPREXA [Suspect]
     Indication: SCHIZOPHRENIA
     Dosage: 20 MG/DAY
     Route: 048
     Dates: start: 20010705, end: 20011018
  2. NATEGLINIDE [Concomitant]
  3. CHLORPROMAZINE HCL [Concomitant]
  4. AKINETON [Concomitant]
  5. VITAMIN A [Concomitant]
  6. NITRAZEPAM [Concomitant]
  7. PURSENNID (SENNA LEAF) [Concomitant]
  8. LIPITOR [Concomitant]
  9. COVERSYL (PERINDOPRIL) [Concomitant]

REACTIONS (4)
  - CONDITION AGGRAVATED [None]
  - DIABETES MELLITUS [None]
  - DIVERTICULITIS [None]
  - MELAENA [None]
